FAERS Safety Report 6431306-2 (Version None)
Quarter: 2009Q4

REPORT INFORMATION
  Report Type: 
  Country: None (occurrence: None)
  Receive Date: 20091105
  Receipt Date: 20091105
  Transmission Date: 20100525
  Serious: Yes (Other)
  Sender: FDA-Public Use
  Company Number: None

PATIENT
  Age: 39 Year
  Sex: Female
  Weight: 74.8435 kg

DRUGS (1)
  1. TRI-SPRINTEC [Suspect]
     Indication: CONTRACEPTION
     Dosage: 1 DAILY
     Dates: start: 20081101, end: 20090201

REACTIONS (2)
  - DEEP VEIN THROMBOSIS [None]
  - PAIN [None]
